FAERS Safety Report 23618015 (Version 1)
Quarter: 2024Q1

REPORT INFORMATION
  Report Type: Report from Study
  Country: US (occurrence: US)
  Receive Date: 20240311
  Receipt Date: 20240311
  Transmission Date: 20240410
  Serious: Yes (Hospitalization, Other)
  Sender: FDA-Public Use
  Company Number: US-ABBVIE-5386963

PATIENT
  Age: 70 Year
  Sex: Male

DRUGS (1)
  1. IMBRUVICA [Suspect]
     Active Substance: IBRUTINIB
     Indication: Chronic lymphocytic leukaemia
     Route: 048
     Dates: start: 202211

REACTIONS (11)
  - Hyperhidrosis [Unknown]
  - Back injury [Unknown]
  - Arthralgia [Unknown]
  - Chills [Unknown]
  - Joint swelling [Unknown]
  - Feeling abnormal [Unknown]
  - Asthenia [Unknown]
  - Chronic lymphocytic leukaemia [Unknown]
  - Peripheral swelling [Unknown]
  - Pain in extremity [Unknown]
  - Intervertebral disc protrusion [Unknown]

NARRATIVE: CASE EVENT DATE: 20230901
